FAERS Safety Report 23821428 (Version 1)
Quarter: 2024Q2

REPORT INFORMATION
  Report Type: Spontaneous
  Country: US (occurrence: None)
  Receive Date: 20240504
  Receipt Date: 20240504
  Transmission Date: 20240716
  Serious: Yes (Disabling, Other)
  Sender: FDA-Public Use
  Company Number: None

PATIENT
  Age: 47 Year
  Sex: Female
  Weight: 81 kg

DRUGS (17)
  1. CLONAZEPAM [Suspect]
     Active Substance: CLONAZEPAM
     Indication: Generalised anxiety disorder
     Dosage: OTHER QUANTITY : .75 TABLET(S);?FREQUENCY : TWICE A DAY;?
     Route: 048
     Dates: start: 20031231
  2. SERTRALINE [Concomitant]
     Active Substance: SERTRALINE HYDROCHLORIDE
  3. MOTEGRITY [Concomitant]
     Active Substance: PRUCALOPRIDE SUCCINATE
  4. METFORMIN [Concomitant]
     Active Substance: METFORMIN HYDROCHLORIDE
  5. ROSUVASTATIN [Concomitant]
     Active Substance: ROSUVASTATIN
  6. GABAPENTIN [Concomitant]
     Active Substance: GABAPENTIN
  7. SYNTHROID [Concomitant]
     Active Substance: LEVOTHYROXINE SODIUM
  8. PANTOPRAZOLE [Concomitant]
     Active Substance: PANTOPRAZOLE
  9. NALTREXONE [Concomitant]
     Active Substance: NALTREXONE
  10. CLONAZEPAM [Concomitant]
     Active Substance: CLONAZEPAM
  11. HERBALS\TURMERIC [Concomitant]
     Active Substance: HERBALS\TURMERIC
  12. QUERCETIN [Concomitant]
     Active Substance: QUERCETIN
  13. FISH OIL [Concomitant]
     Active Substance: FISH OIL
  14. VITAMIN D NOS [Concomitant]
     Active Substance: VITAMIN D NOS
  15. ADRENAL SUPPORT [Concomitant]
     Active Substance: HOMEOPATHICS
  16. MAGNESIUM [Concomitant]
     Active Substance: MAGNESIUM
  17. DIM [Concomitant]

REACTIONS (16)
  - Memory impairment [None]
  - Palpitations [None]
  - Palpitations [None]
  - Agitation [None]
  - Anxiety [None]
  - Chest pain [None]
  - Chest discomfort [None]
  - Headache [None]
  - Dyspnoea [None]
  - Fatigue [None]
  - Insomnia [None]
  - Hyperhidrosis [None]
  - Tremor [None]
  - Pain [None]
  - Gastrointestinal disorder [None]
  - Withdrawal syndrome [None]

NARRATIVE: CASE EVENT DATE: 20230910
